FAERS Safety Report 7788696-8 (Version None)
Quarter: 2011Q3

REPORT INFORMATION
  Report Type: 
  Country: None (occurrence: None)
  Receive Date: 20110930
  Receipt Date: 20110617
  Transmission Date: 20111222
  Serious: No
  Sender: FDA-Public Use
  Company Number: US-VIIV HEALTHCARE LIMITED-A0932529A

PATIENT
  Sex: Male

DRUGS (1)
  1. EPZICOM [Suspect]
     Route: 065

REACTIONS (1)
  - CREATININE RENAL CLEARANCE ABNORMAL [None]
